FAERS Safety Report 4457783-4 (Version None)
Quarter: 2004Q3

REPORT INFORMATION
  Report Type: 
  Country: None (occurrence: None)
  Receive Date: 20040917
  Receipt Date: 20031212
  Transmission Date: 20050211
  Serious: Yes (Other)
  Sender: FDA-Public Use
  Company Number: NSADSS2002043848

PATIENT
  Age: 39 Year
  Sex: Female
  Weight: 99.7913 kg

DRUGS (4)
  1. TOPAMAX [Suspect]
     Indication: MOOD ALTERED
     Dosage: 25 MG,  IN 1 DAY, ORAL
     Route: 048
     Dates: start: 20020911, end: 20020915
  2. PAXIL [Concomitant]
  3. GLUCOTROL [Concomitant]
  4. ATENOLOL [Concomitant]

REACTIONS (3)
  - ANGLE CLOSURE GLAUCOMA [None]
  - MYOPIA [None]
  - RENAL PAIN [None]
